FAERS Safety Report 8258517-8 (Version None)
Quarter: 2012Q2

REPORT INFORMATION
  Report Type: 
  Country: None (occurrence: None)
  Receive Date: 20120404
  Receipt Date: 20120330
  Transmission Date: 20120825
  Serious: Yes (Hospitalization)
  Sender: FDA-Public Use
  Company Number: BR-PFIZER INC-2012058454

PATIENT
  Age: 49 Year
  Sex: Male
  Weight: 72 kg

DRUGS (4)
  1. MORPHINE SULFATE [Concomitant]
     Dosage: 6X DAILY
  2. LORAZEPAM [Concomitant]
     Dosage: UNK
  3. SUTENT [Suspect]
     Indication: RENAL CANCER
     Dosage: 50 MG, 1X/DAY
     Route: 048
     Dates: start: 20120214
  4. HEPARIN [Concomitant]
     Dosage: UNK

REACTIONS (5)
  - RESPIRATORY DISORDER [None]
  - FATIGUE [None]
  - OXYGEN SATURATION DECREASED [None]
  - PAIN [None]
  - FLATULENCE [None]
